FAERS Safety Report 20013855 (Version 1)
Quarter: 2021Q4

REPORT INFORMATION
  Report Type: Spontaneous
  Country: DE (occurrence: DE)
  Receive Date: 20211029
  Receipt Date: 20211029
  Transmission Date: 20220303
  Serious: Yes (Hospitalization)
  Sender: FDA-Public Use
  Company Number: DE-ADRED-06963-01

PATIENT
  Age: 43 Year
  Sex: Female
  Weight: 60 kg

DRUGS (5)
  1. ADALIMUMAB [Suspect]
     Active Substance: ADALIMUMAB
     Indication: Product used for unknown indication
     Dosage: UNK (SCHEMA )
  2. IBUPROFEN [Concomitant]
     Active Substance: IBUPROFEN
     Dosage: 400 MG, AS NEEDED
  3. FOLIC ACID [Concomitant]
     Active Substance: FOLIC ACID
     Dosage: 5 MILLIGRAM
  4. SODIUM [Concomitant]
     Active Substance: SODIUM
     Dosage: UNK
  5. METHOTREXATE (METHOTREXATE SODIUM) [Concomitant]
     Active Substance: METHOTREXATE SODIUM
     Dosage: 10 MG, 1-0-0-1

REACTIONS (4)
  - Diplopia [Unknown]
  - General physical health deterioration [Unknown]
  - Headache [Unknown]
  - Ear pain [Unknown]

NARRATIVE: CASE EVENT DATE: 20201026
